FAERS Safety Report 21440630 (Version 1)
Quarter: 2022Q4

REPORT INFORMATION
  Report Type: Spontaneous
  Country: US (occurrence: None)
  Receive Date: 20221010
  Receipt Date: 20221010
  Transmission Date: 20230112
  Serious: Yes (Hospitalization, Other)
  Sender: FDA-Public Use
  Company Number: None

PATIENT
  Age: 24 Year
  Sex: Female
  Weight: 68.04 kg

DRUGS (2)
  1. PARAGARD T 380A [Suspect]
     Active Substance: COPPER
  2. UNSPECIFIED INGREDIENT [Suspect]
     Active Substance: UNSPECIFIED INGREDIENT

REACTIONS (11)
  - Dizziness [None]
  - Nausea [None]
  - Vomiting [None]
  - Pyrexia [None]
  - Heavy menstrual bleeding [None]
  - Fatigue [None]
  - Depression [None]
  - Bladder disorder [None]
  - Discomfort [None]
  - Urinary incontinence [None]
  - Complication associated with device [None]

NARRATIVE: CASE EVENT DATE: 20220302
